FAERS Safety Report 6902009-2 (Version None)
Quarter: 2010Q3

REPORT INFORMATION
  Report Type: 
  Country: None (occurrence: None)
  Receive Date: 20100803
  Receipt Date: 20080411
  Transmission Date: 20110219
  Serious: No
  Sender: FDA-Public Use
  Company Number: US-PFIZER INC-2008032566

PATIENT
  Sex: Male
  Weight: 109.09 kg

DRUGS (7)
  1. LYRICA [Suspect]
     Indication: NEUROPATHY PERIPHERAL
     Route: 048
     Dates: start: 20080409, end: 20080410
  2. OXYCONTIN [Concomitant]
  3. HYDROCODONE BITARTRATE [Concomitant]
  4. ATENOLOL [Concomitant]
  5. TEMAZEPAM [Concomitant]
  6. TRAZODONE [Concomitant]
  7. HERBAL PREPARATION [Concomitant]

REACTIONS (1)
  - MIGRAINE [None]
